FAERS Safety Report 5456375-8 (Version None)
Quarter: 2007Q3

REPORT INFORMATION
  Report Type: 
  Country: None (occurrence: None)
  Receive Date: 20070918
  Receipt Date: 20070430
  Transmission Date: 20080115
  Serious: Yes (Other)
  Sender: FDA-Public Use
  Company Number: US-ASTRAZENECA-2006UW24858

PATIENT
  Age: 15417 Day
  Sex: Female

DRUGS (2)
  1. SEROQUEL [Suspect]
     Dosage: DOES NOT RECALL DOSES, DATES OF USE, OR INDICATION FOR USE
     Route: 048
  2. ZYPREXA [Suspect]

REACTIONS (1)
  - PANCREATITIS [None]
